FAERS Safety Report 14044030 (Version 5)
Quarter: 2018Q3

REPORT INFORMATION
  Report Type: Report from Study
  Country: DE (occurrence: DE)
  Receive Date: 20171004
  Receipt Date: 20180807
  Transmission Date: 20181010
  Serious: Yes (Other)
  Sender: FDA-Public Use
  Company Number: DE-BRISTOL-MYERS SQUIBB COMPANY-BMS-2017-087221

PATIENT
  Age: 63 Year
  Sex: Female
  Weight: 75 kg

DRUGS (2)
  1. APIXABAN [Suspect]
     Active Substance: APIXABAN
     Indication: PRODUCT USED FOR UNKNOWN INDICATION
     Dosage: 5 MG, BID
     Route: 048
  2. APIXABAN [Suspect]
     Active Substance: APIXABAN
     Indication: EMBOLISM VENOUS
     Dosage: 10 MG, BID
     Route: 048
     Dates: start: 20161103

REACTIONS (3)
  - Traumatic haematoma [Unknown]
  - Fall [Unknown]
  - Haemarthrosis [Unknown]

NARRATIVE: CASE EVENT DATE: 20170516
